FAERS Safety Report 16320210 (Version 1)
Quarter: 2019Q2

REPORT INFORMATION
  Report Type: Spontaneous
  Country: US (occurrence: US)
  Receive Date: 20190410
  Receipt Date: 20190410
  Transmission Date: 20190711
  Serious: Yes (Death)
  Sender: FDA-Public Use
  Company Number: None

PATIENT
  Age: 66 Year
  Sex: Male

DRUGS (16)
  1. LEVOTHYROXINE. [Concomitant]
     Active Substance: LEVOTHYROXINE
  2. LINEZOLID. [Concomitant]
     Active Substance: LINEZOLID
  3. OCUVITE [Concomitant]
     Active Substance: VITAMINS
  4. WARFARIN [Concomitant]
     Active Substance: WARFARIN
  5. EPCLUSA [Concomitant]
     Active Substance: SOFOSBUVIR\VELPATASVIR
  6. LORATADINE. [Concomitant]
     Active Substance: LORATADINE
  7. SMZ/TMP [Concomitant]
     Active Substance: SULFAMETHOXAZOLE\TRIMETHOPRIM
  8. ESBRIET [Suspect]
     Active Substance: PIRFENIDONE
     Indication: INTERSTITIAL LUNG DISEASE
     Dosage: 801 MG TID PO WITH MEALS
     Route: 048
     Dates: start: 20170131, end: 201812
  9. FISH OIL [Concomitant]
     Active Substance: FISH OIL
  10. MAPAP [Concomitant]
     Active Substance: ACETAMINOPHEN
  11. MELATONIN [Concomitant]
     Active Substance: MELATONIN
  12. LORATADINE. [Concomitant]
     Active Substance: LORATADINE
  13. GABAPENTIN. [Concomitant]
     Active Substance: GABAPENTIN
  14. AZITHROMYCIN ANHYDROUS. [Concomitant]
     Active Substance: AZITHROMYCIN ANHYDROUS
  15. OMEPRAZOLE. [Concomitant]
     Active Substance: OMEPRAZOLE
  16. PEG - 3350 [Concomitant]

REACTIONS (1)
  - Lung disorder [None]

NARRATIVE: CASE EVENT DATE: 20190403
